FAERS Safety Report 6933973-3 (Version None)
Quarter: 2010Q3

REPORT INFORMATION
  Report Type: 
  Country: None (occurrence: None)
  Receive Date: 20100820
  Receipt Date: 20100812
  Transmission Date: 20110219
  Serious: Yes (Other)
  Sender: FDA-Public Use
  Company Number: AU-PFIZER INC-2010090692

PATIENT
  Age: 68 Year
  Sex: Male
  Weight: 94.5 kg

DRUGS (5)
  1. CADUET [Suspect]
     Indication: HYPERTENSION
     Dosage: 10 MG/20 MG, 1X/DAY
     Route: 048
     Dates: start: 20070221, end: 20100604
  2. CADUET [Suspect]
     Indication: DYSLIPIDAEMIA
  3. ACETYLSALICYLIC ACID [Concomitant]
     Dosage: 100 MG, 1X/DAY
  4. DIABEX S.R. [Concomitant]
     Dosage: 500 MG, 1X/DAY
  5. KARVEZIDE [Concomitant]
     Dosage: 300/12.5 ONCE DAILY

REACTIONS (2)
  - BLOOD PRESSURE INADEQUATELY CONTROLLED [None]
  - GINGIVITIS [None]
